FAERS Safety Report 17837165 (Version 1)
Quarter: 2020Q2

REPORT INFORMATION
  Report Type: Report from Study
  Country: AE (occurrence: AE)
  Receive Date: 20200528
  Receipt Date: 20200528
  Transmission Date: 20200714
  Serious: Yes (Other)
  Sender: FDA-Public Use
  Company Number: PHHY2019AE197304

PATIENT
  Age: 33 Year
  Sex: Male

DRUGS (1)
  1. COSENTYX [Suspect]
     Active Substance: SECUKINUMAB
     Indication: ANKYLOSING SPONDYLITIS
     Dosage: 150 MG, QMO
     Route: 058
     Dates: start: 20180206

REACTIONS (7)
  - Urinary retention [Unknown]
  - Prostatitis [Not Recovered/Not Resolved]
  - Urinary tract infection bacterial [Unknown]
  - C-reactive protein increased [Not Recovered/Not Resolved]
  - Blood test abnormal [Unknown]
  - Pyrexia [Recovering/Resolving]
  - Vitamin D decreased [Not Recovered/Not Resolved]

NARRATIVE: CASE EVENT DATE: 201908
